FAERS Safety Report 14839782 (Version 1)
Quarter: 2018Q2

REPORT INFORMATION
  Report Type: Spontaneous
  Country: FR (occurrence: FR)
  Receive Date: 20180503
  Receipt Date: 20180503
  Transmission Date: 20180711
  Serious: Yes (Other)
  Sender: FDA-Public Use
  Company Number: FR-MERCK KGAA-2047047

PATIENT
  Age: 41 Year
  Sex: Female
  Weight: 84 kg

DRUGS (3)
  1. NOVOTHYROX [Suspect]
     Active Substance: LEVOTHYROXINE SODIUM
     Indication: POST PROCEDURAL HYPOTHYROIDISM
     Route: 048
     Dates: start: 20170501, end: 20170515
  2. LEVOTHYROX 175 NF [Suspect]
     Active Substance: LEVOTHYROXINE
     Dates: start: 2017, end: 201711
  3. LEVOTHYROX 150 NF [Suspect]
     Active Substance: LEVOTHYROXINE SODIUM
     Dates: start: 20170515

REACTIONS (26)
  - Hypokinesia [None]
  - Disturbance in attention [Recovered/Resolved]
  - Asthenia [Recovered/Resolved]
  - Hypothyroidism [None]
  - Mental impairment [None]
  - Somnolence [None]
  - Dizziness [None]
  - Insomnia [None]
  - Confusional state [None]
  - Anger [None]
  - Suicidal ideation [None]
  - Impaired work ability [None]
  - Social avoidant behaviour [None]
  - Somnolence [None]
  - Anxiety [None]
  - Vision blurred [Recovered/Resolved]
  - Mental fatigue [None]
  - Depression [None]
  - Headache [None]
  - Feeling abnormal [None]
  - Rash [None]
  - Loss of personal independence in daily activities [None]
  - Loss of libido [None]
  - Hypersomnia [None]
  - Personal relationship issue [None]
  - Diarrhoea [None]

NARRATIVE: CASE EVENT DATE: 2017
